FAERS Safety Report 11050821 (Version 2)
Quarter: 2015Q2

REPORT INFORMATION
  Report Type: Spontaneous
  Country: NO (occurrence: NO)
  Receive Date: 20150421
  Receipt Date: 20150424
  Transmission Date: 20150821
  Serious: Yes (Life-Threatening, Hospitalization)
  Sender: FDA-Public Use
  Company Number: NO-JNJFOC-20150411437

PATIENT
  Age: 43 Year
  Sex: Male

DRUGS (3)
  1. IMUREL [Suspect]
     Active Substance: AZATHIOPRINE SODIUM
     Indication: CROHN^S DISEASE
     Dosage: 150 TO 200 MG
     Route: 048
     Dates: start: 2012, end: 20150112
  2. HUMIRA [Suspect]
     Active Substance: ADALIMUMAB
     Indication: CROHN^S DISEASE
     Route: 058
     Dates: start: 2008, end: 20150112
  3. REMICADE [Suspect]
     Active Substance: INFLIXIMAB
     Indication: CROHN^S DISEASE
     Route: 042
     Dates: start: 2006, end: 2008

REACTIONS (1)
  - Hodgkin^s disease nodular sclerosis [Recovering/Resolving]

NARRATIVE: CASE EVENT DATE: 20150112
